FAERS Safety Report 6193823-2 (Version None)
Quarter: 2009Q2

REPORT INFORMATION
  Report Type: 
  Country: None (occurrence: None)
  Receive Date: 20090518
  Receipt Date: 20090505
  Transmission Date: 20091009
  Serious: Yes (Other)
  Sender: FDA-Public Use
  Company Number: US-AVENTIS-200817712US

PATIENT
  Sex: Female
  Weight: 49.5 kg

DRUGS (31)
  1. KETEK [Suspect]
     Indication: CHRONIC SINUSITIS
     Dates: start: 20050405, end: 20050413
  2. PREDNISONE [Suspect]
  3. PREDNISONE [Suspect]
  4. MOTRIN [Suspect]
  5. AUGMENTIN '125' [Suspect]
     Indication: SINUSITIS
     Dosage: DOSE: UNK
     Dates: start: 20050126, end: 20050206
  6. ZITHROMAX [Suspect]
     Dosage: DOSE: UNK
  7. ZOCOR [Suspect]
  8. HERBAL PREPARATION [Suspect]
     Dosage: DOSE: UNK
  9. FOSAMAX [Concomitant]
     Indication: OSTEOPENIA
     Dosage: DOSE: UNK
  10. MULTI-VITAMINS [Concomitant]
     Dosage: DOSE: UNK
  11. COENZYME Q10                       /00517201/ [Concomitant]
     Dosage: DOSE: UNK
  12. PRIMROSE OIL [Concomitant]
     Dosage: DOSE: UNK
  13. VITAMIN E [Concomitant]
  14. MUCINEX [Concomitant]
     Dates: start: 20050531
  15. LEVAQUIN [Concomitant]
     Dosage: DOSE: UNK
  16. LASIX [Concomitant]
     Dosage: DOSE: UNK
  17. ATROVENT [Concomitant]
     Dosage: DOSE: UNK
  18. QUININE SULFATE [Concomitant]
     Dosage: DOSE: UNK
     Dates: start: 20050405
  19. NASONEX [Concomitant]
     Dosage: DOSE: UNK
     Dates: start: 20050531
  20. ALLEGRA [Concomitant]
     Dates: start: 20050616
  21. PROPOXYPHENE NAPSYLATE W/ ACETAMINOPHEN [Concomitant]
     Dosage: DOSE QUANTITY: 100
     Dates: start: 20050506
  22. FEMHRT [Concomitant]
     Dosage: DOSE: UNK
  23. COENZYME Q10 [Concomitant]
     Dosage: DOSE: UNK
  24. VALTREX [Concomitant]
     Indication: HERPES ZOSTER
     Dosage: DOSE: UNK
  25. VITAMIN E [Concomitant]
     Dosage: DOSE: UNK
  26. SINGULAIR [Concomitant]
     Dosage: DOSE: UNK
  27. CALCIUM [Concomitant]
     Dosage: DOSE: UNK
  28. ASTELIN                            /00884002/ [Concomitant]
     Dosage: DOSE: UNK
  29. DIFLUCAN [Concomitant]
     Dates: start: 20050418
  30. PRILOSEC [Concomitant]
     Dosage: DOSE: UNK
  31. CALTRATE                           /00108001/ [Concomitant]
     Dosage: DOSE: UNK

REACTIONS (22)
  - ANOREXIA [None]
  - BLOOD ALBUMIN DECREASED [None]
  - BLOOD BILIRUBIN INCREASED [None]
  - C-REACTIVE PROTEIN INCREASED [None]
  - CHILLS [None]
  - CHOLESTATIC LIVER INJURY [None]
  - COUGH [None]
  - DRY MOUTH [None]
  - FATIGUE [None]
  - HAEMATURIA [None]
  - HEADACHE [None]
  - HERPES ZOSTER [None]
  - JAUNDICE [None]
  - LIVER FUNCTION TEST ABNORMAL [None]
  - MUSCULAR WEAKNESS [None]
  - ORAL CANDIDIASIS [None]
  - PAIN [None]
  - PROTEINURIA [None]
  - PYREXIA [None]
  - RASH [None]
  - URINE ANALYSIS ABNORMAL [None]
  - WEIGHT DECREASED [None]
